FAERS Safety Report 8117120-0 (Version None)
Quarter: 2012Q1

REPORT INFORMATION
  Report Type: 
  Country: None (occurrence: None)
  Receive Date: 20120206
  Receipt Date: 20120202
  Transmission Date: 20120608
  Serious: Yes (Hospitalization)
  Sender: FDA-Public Use
  Company Number: IT-BAYER-2012-011116

PATIENT
  Sex: Female

DRUGS (2)
  1. ACETAMINOPHEN [Suspect]
     Dosage: UNK
  2. KETOPROFEN [Suspect]
     Dosage: UNK

REACTIONS (2)
  - THROMBOCYTOPENIC PURPURA [None]
  - HAEMORRHAGIC DIATHESIS [None]
